FAERS Safety Report 16757157 (Version 2)
Quarter: 2019Q3

REPORT INFORMATION
  Report Type: Spontaneous
  Country: FR (occurrence: FR)
  Receive Date: 20190829
  Receipt Date: 20190926
  Transmission Date: 20191005
  Serious: Yes (Other)
  Sender: FDA-Public Use
  Company Number: FR-TEVA-2019-FR-1098750

PATIENT
  Age: 47 Year
  Sex: Female

DRUGS (11)
  1. PARACETAMOL [Suspect]
     Active Substance: ACETAMINOPHEN
     Indication: MIGRAINE
     Route: 048
     Dates: start: 20190627, end: 20190627
  2. KETOPROFENE [Suspect]
     Active Substance: KETOPROFEN
     Indication: MIGRAINE
     Route: 048
     Dates: start: 201906
  3. SUMATRIPTAN. [Suspect]
     Active Substance: SUMATRIPTAN
     Indication: MIGRAINE
     Route: 048
     Dates: start: 20190626, end: 20190627
  4. LARGACTIL [Suspect]
     Active Substance: CHLORPROMAZINE
     Indication: MIGRAINE
     Route: 048
     Dates: start: 20190628, end: 20190701
  5. ACIDE FOLIQUE [Concomitant]
     Active Substance: FOLIC ACID
     Route: 048
  6. CODEINE [Suspect]
     Active Substance: CODEINE
     Indication: MIGRAINE
     Route: 048
     Dates: start: 20190627, end: 20190627
  7. SERETIDE [Concomitant]
     Active Substance: FLUTICASONE PROPIONATE\SALMETEROL XINAFOATE
     Route: 055
  8. LEVOTHYROX 100 MICROGRAMMES, COMPRIME SECABLE [Concomitant]
     Active Substance: LEVOTHYROXINE
  9. DONORMYL (DOXYLAMINE SUCCINATE\SODIUM PHOSPHATE DIBASIC\SODIUM BROMIDE\SODIUM SULFATE) [Suspect]
     Active Substance: DOXYLAMINE\SODIUM BROMIDE\SODIUM PHOSPHATE, DIBASIC, ANHYDROUS\SODIUM SULFATE
     Indication: INSOMNIA
     Route: 048
     Dates: start: 20190701, end: 20190701
  10. PRIMPERAN [Suspect]
     Active Substance: METOCLOPRAMIDE HYDROCHLORIDE
     Indication: VOMITING
     Route: 048
     Dates: start: 201906
  11. FUMAFER [Concomitant]
     Active Substance: FERROUS FUMARATE
     Route: 048

REACTIONS (2)
  - Foetal death [Recovered/Resolved]
  - Abortion spontaneous [Recovered/Resolved]

NARRATIVE: CASE EVENT DATE: 20190702
